FAERS Safety Report 8115646 (Version 5)
Quarter: 2020Q3

REPORT INFORMATION
  Report Type: Report from Study
  Country: RO (occurrence: RO)
  Receive Date: 20110831
  Receipt Date: 20120501
  Transmission Date: 20201105
  Serious: Yes (Hospitalization)
  Sender: FDA-Public Use
  Company Number: RO-JNJFOC-20110811605

PATIENT
  Age: 43 Year
  Sex: Female
  Weight: 74 kg

DRUGS (8)
  1. TRIHEXYPHENIDYL HYDROCHLORIDE. [Concomitant]
     Active Substance: TRIHEXYPHENIDYL HYDROCHLORIDE
     Indication: HEAD TITUBATION
     Route: 048
     Dates: start: 20110704, end: 20110803
  2. TRIHEXYPHENIDYL HYDROCHLORIDE. [Concomitant]
     Active Substance: TRIHEXYPHENIDYL HYDROCHLORIDE
     Indication: DYSTONIA
     Route: 048
     Dates: start: 20110704, end: 20110803
  3. PALIPERIDONE PALMITATE [Suspect]
     Active Substance: PALIPERIDONE PALMITATE
     Route: 030
     Dates: start: 20110725, end: 20110725
  4. VALPROIC ACID. [Concomitant]
     Active Substance: VALPROIC ACID
     Indication: SCHIZOAFFECTIVE DISORDER
     Route: 048
     Dates: start: 20110222, end: 201104
  5. PALIPERIDONE PALMITATE [Suspect]
     Active Substance: PALIPERIDONE PALMITATE
     Indication: SCHIZOAFFECTIVE DISORDER
     Route: 030
     Dates: start: 20110801, end: 20110801
  6. VALPROIC ACID. [Concomitant]
     Active Substance: VALPROIC ACID
     Indication: DRUG THERAPY
     Route: 048
     Dates: start: 20110222, end: 201104
  7. VALPROIC ACID. [Concomitant]
     Active Substance: VALPROIC ACID
     Route: 048
     Dates: start: 201104, end: 20110821
  8. VALPROIC ACID. [Concomitant]
     Active Substance: VALPROIC ACID
     Route: 048
     Dates: start: 201104, end: 20110821

REACTIONS (1)
  - Vomiting [Recovered/Resolved]

NARRATIVE: CASE EVENT DATE: 20110819
